FAERS Safety Report 9167632 (Version 2)
Quarter: 2013Q3

REPORT INFORMATION
  Report Type: Spontaneous
  Country: CA (occurrence: None)
  Receive Date: 20130307
  Receipt Date: 20130731
  Transmission Date: 20140515
  Serious: Yes (Other)
  Sender: FDA-Public Use
  Company Number: 2013000035

PATIENT
  Age: 60 Year
  Sex: Female

DRUGS (10)
  1. ACEON [Suspect]
     Indication: PRODUCT USED FOR UNKNOWN INDICATION
     Dosage: 4 MG, QD
     Route: 048
     Dates: start: 20120704, end: 20120712
  2. CALCIUM (CALCIUM) [Concomitant]
  3. MEGNESIUM (MAGNESIUM) [Concomitant]
  4. GLUCOSAMINE (GLUCOSAMINE) [Concomitant]
  5. CHONDROITIN SULFATE SODIUM (CHONDROITIN SULFATE SODIUM) [Concomitant]
  6. TYLENOL ARTHRITIS PAIN (PARACETAMOL) [Concomitant]
  7. PANAX GINSENG (PANAX GINSENG) [Concomitant]
  8. COD LIVER OIL (COD LIVER OIL) [Concomitant]
  9. CRANBERRY (CRANBERRY) [Concomitant]
  10. VITAMINS [Concomitant]

REACTIONS (3)
  - Dyspnoea [None]
  - Erythema [None]
  - Swelling face [None]
